FAERS Safety Report 12972207 (Version 2)
Quarter: 2017Q3

REPORT INFORMATION
  Report Type: Spontaneous
  Country: US (occurrence: US)
  Receive Date: 20161124
  Receipt Date: 20170910
  Transmission Date: 20171127
  Serious: No
  Sender: FDA-Public Use
  Company Number: US-009507513-1611USA010829

PATIENT
  Age: 19 Year
  Sex: Female
  Weight: 90.7 kg

DRUGS (3)
  1. NUVARING [Suspect]
     Active Substance: ETHINYL ESTRADIOL\ETONOGESTREL
     Indication: CONTRACEPTION
     Dosage: 3 WEEKS IN 1 WEEK OUT
     Route: 067
  2. NUVARING [Suspect]
     Active Substance: ETHINYL ESTRADIOL\ETONOGESTREL
     Dosage: ^3 WEEKS INSIDE THEN 1 WEEK BREAK
     Route: 067
     Dates: start: 201708
  3. DOXY [Concomitant]
     Active Substance: DOXYCYCLINE

REACTIONS (4)
  - Withdrawal bleed [Unknown]
  - Device expulsion [Unknown]
  - Inappropriate schedule of drug administration [Unknown]
  - Device breakage [Unknown]

NARRATIVE: CASE EVENT DATE: 20161010
